FAERS Safety Report 12379506 (Version 2)
Quarter: 2016Q2

REPORT INFORMATION
  Report Type: Spontaneous
  Country: US (occurrence: US)
  Receive Date: 20160517
  Receipt Date: 20160520
  Transmission Date: 20160815
  Serious: No
  Sender: FDA-Public Use
  Company Number: US-TEIKOKU PHARMA USA-TPU2015-00508

PATIENT
  Sex: Female

DRUGS (2)
  1. LIDODERM [Suspect]
     Active Substance: LIDOCAINE
     Indication: PAIN
     Route: 061
  2. NO DRUG NAME [Suspect]
     Active Substance: UNSPECIFIED INGREDIENT
     Route: 008

REACTIONS (3)
  - Musculoskeletal discomfort [Unknown]
  - Product adhesion issue [None]
  - Drug ineffective for unapproved indication [Not Recovered/Not Resolved]
